FAERS Safety Report 7296658-2 (Version None)
Quarter: 2011Q1

REPORT INFORMATION
  Report Type: 
  Country: None (occurrence: None)
  Receive Date: 20110204
  Receipt Date: 20110126
  Transmission Date: 20110831
  Serious: Yes (Hospitalization, Other)
  Sender: FDA-Public Use
  Company Number: 2011JP005470

PATIENT
  Age: 47 Year
  Sex: Female
  Weight: 44 kg

DRUGS (17)
  1. EMEND [Concomitant]
  2. GRANISETRON HCL (GRANISETRON) INTRAVENOUS [Concomitant]
  3. REPLAS1 [Concomitant]
  4. DEXART (DEXAMETHASONE SODIUM PHOSPHATE) [Concomitant]
  5. NAIXAN (NAPROXEN SODIUM) [Concomitant]
  6. FLAVERIC (BENPROPERINE PHOSPHATE) [Concomitant]
  7. RESPLEN (EPRAZINONE HYDROCHLORIDE) [Concomitant]
  8. PRIMPERAN ELIXIR [Concomitant]
  9. OMEPRAL (OMEPRAZOLE SODIUM) [Suspect]
     Dosage: 10 MG, QD, ORAL
     Route: 048
     Dates: start: 20101112, end: 20101220
  10. GANATON (ITOPRIDE HYDROCHLORIDE) [Concomitant]
  11. REBAMIPIDE (REBAMIPIDE) [Concomitant]
  12. CODEINE PHOSPHATE (CODEINE PHOSPHATE) [Concomitant]
  13. ESRON B (MAGNESIUM CHLORIDE ANHYDROUS, MALTOSE, POTASSIUM CHLORIDE, PO [Concomitant]
  14. MANNITOL S (MANNITOL, SORBITOL) [Concomitant]
  15. ALOXI [Suspect]
     Indication: PROPHYLAXIS OF NAUSEA AND VOMITING
     Dosage: 0.75 MG, SINGLE, IV DRIP
     Route: 041
     Dates: start: 20101202, end: 20101202
  16. IRINOTECAN (IRINOTECAN HYDROCHLORIDE) 40MG [Suspect]
     Indication: NON-SMALL CELL LUNG CANCER METASTATIC
     Dosage: 80 MG, QD, IV DRIP
     Route: 041
     Dates: start: 20101202, end: 20101216
  17. PLATOSIN (CISPLATIN) [Suspect]
     Indication: NON-SMALL CELL LUNG CANCER METASTATIC
     Dosage: 75 MG/M2, QD, IV DRIP
     Route: 041
     Dates: start: 20101202, end: 20101202

REACTIONS (9)
  - EOSINOPHIL COUNT INCREASED [None]
  - RASH [None]
  - WHITE BLOOD CELL COUNT INCREASED [None]
  - C-REACTIVE PROTEIN INCREASED [None]
  - PRURITUS [None]
  - ERYTHEMA [None]
  - SKIN EXFOLIATION [None]
  - PYREXIA [None]
  - WHITE BLOOD CELL COUNT DECREASED [None]
